FAERS Safety Report 9607502 (Version 3)
Quarter: 2013Q4

REPORT INFORMATION
  Report Type: Report from Study
  Country: CA (occurrence: CA)
  Receive Date: 20131009
  Receipt Date: 20131213
  Transmission Date: 20140711
  Serious: Yes (Hospitalization, Other)
  Sender: FDA-Public Use
  Company Number: CA-ROCHE-1286345

PATIENT
  Sex: Male
  Weight: 99 kg

DRUGS (8)
  1. RITUXAN [Suspect]
     Indication: CENTRAL NERVOUS SYSTEM LYMPHOMA
     Route: 042
     Dates: start: 20130908
  2. DEXAMETHASONE [Concomitant]
  3. SEPTRA [Concomitant]
  4. VALACYCLOVIR [Concomitant]
  5. RANITIDINE [Concomitant]
  6. GABAPENTIN [Concomitant]
  7. CALCIUM CARBONATE [Concomitant]
  8. MESNA [Concomitant]

REACTIONS (3)
  - Fluid retention [Unknown]
  - X-ray abnormal [Unknown]
  - Neoplasm progression [Unknown]
